FAERS Safety Report 9213146 (Version 2)
Quarter: 2013Q4

REPORT INFORMATION
  Report Type: Spontaneous
  Country: US (occurrence: US)
  Receive Date: 20130405
  Receipt Date: 20131025
  Transmission Date: 20140711
  Serious: Yes (Hospitalization, Disabling, Other)
  Sender: FDA-Public Use
  Company Number: US-BAYER-2013-041461

PATIENT
  Age: 28 Year
  Sex: Female
  Weight: 97.51 kg

DRUGS (3)
  1. MIRENA [Suspect]
     Indication: CONTRACEPTION
     Dosage: 20 MCG/24HR, CONT
     Route: 015
     Dates: start: 20110126, end: 20121213
  2. CEFTRIAXONE [Concomitant]
  3. IBUPROFEN [Concomitant]
     Indication: MENORRHAGIA

REACTIONS (18)
  - Renal failure [None]
  - Uterine perforation [None]
  - Injury [None]
  - Pain [None]
  - Abdominal pain lower [None]
  - Vaginal haemorrhage [None]
  - Vomiting [None]
  - Heart rate decreased [None]
  - Neck pain [None]
  - Mobility decreased [None]
  - Menorrhagia [None]
  - Emotional distress [None]
  - Anxiety [None]
  - Dyspareunia [None]
  - Genital haemorrhage [None]
  - Post procedural haemorrhage [None]
  - Device issue [None]
  - Infertility female [None]
